FAERS Safety Report 11615334 (Version 1)
Quarter: 2015Q4

REPORT INFORMATION
  Report Type: Spontaneous
  Country: US (occurrence: None)
  Receive Date: 20151008
  Receipt Date: 20151008
  Transmission Date: 20160304
  Serious: Yes (Life-Threatening, Disabling)
  Sender: FDA-Public Use
  Company Number: None

PATIENT
  Age: 51 Year
  Sex: Male
  Weight: 88.45 kg

DRUGS (17)
  1. ELIMINAID [Concomitant]
  2. 1-ARGININE PLUS [Concomitant]
  3. MCT COLADA EMULSIFIED MEDIUM CHAIN TRIGLYCERIDES [Concomitant]
  4. OMEGAVAIL EMULSIFIED OMEGA-3 1820 MG EPA + DHA [Concomitant]
  5. PHENERGAN [Suspect]
     Active Substance: PROMETHAZINE HYDROCHLORIDE
     Indication: NAUSEA
     Dosage: DURING SURGERY ?INTO A VEIN
     Route: 042
     Dates: start: 20080108, end: 20080108
  6. CLOAZEPAM [Concomitant]
  7. ZOFRAN [Concomitant]
     Active Substance: ONDANSETRON HYDROCHLORIDE
  8. ACP DAILY VITAMIN [Concomitant]
  9. THYROID HEALTH ONE [Concomitant]
  10. FENTANYL TRANSDERMAL SYSTEM [Concomitant]
     Active Substance: FENTANYL
  11. BALCOFEN [Concomitant]
     Active Substance: BACLOFEN
  12. COLO-EASE [Concomitant]
  13. VITAMIN D ULTRA [Concomitant]
  14. PERCOCET 10-325 [Concomitant]
  15. NEUROMAG [Concomitant]
  16. NEUROCALM [Concomitant]
  17. N3 RELAXA [Concomitant]

REACTIONS (3)
  - Dystonia [None]
  - Pain [None]
  - Emotional disorder [None]

NARRATIVE: CASE EVENT DATE: 20080108
